FAERS Safety Report 5008832-6 (Version None)
Quarter: 2006Q2

REPORT INFORMATION
  Report Type: 
  Country: None (occurrence: None)
  Receive Date: 20060518
  Receipt Date: 20060427
  Transmission Date: 20061013
  Serious: Yes (Hospitalization)
  Sender: FDA-Public Use
  Company Number: USA040362774

PATIENT
  Age: 71 Year
  Sex: Female
  Weight: 54.5 kg

DRUGS (9)
  1. FORTEO [Suspect]
     Indication: OSTEOPOROSIS
     Dosage: 20 UG DAILY (1/D) SUBCUTANEOUS
     Route: 058
     Dates: start: 20040305, end: 20041104
  2. FORTEO [Concomitant]
  3. CALCIUM GLUCONATE [Concomitant]
  4. VITAMIN E [Concomitant]
  5. CENTURY SENIOR [Concomitant]
  6. CRANBERRY [Concomitant]
  7. ACETAMINOPHEN [Concomitant]
  8. ADVIL [Concomitant]
  9. KEFLEX [Concomitant]

REACTIONS (22)
  - BACK PAIN [None]
  - BLOOD CALCIUM INCREASED [None]
  - BLOOD PRESSURE INCREASED [None]
  - CONDITION AGGRAVATED [None]
  - CONTUSION [None]
  - DIZZINESS [None]
  - FLANK PAIN [None]
  - HAEMORRHAGE [None]
  - INJECTION SITE BRUISING [None]
  - INJECTION SITE DISCOMFORT [None]
  - INJECTION SITE ERYTHEMA [None]
  - INJECTION SITE HAEMORRHAGE [None]
  - INJECTION SITE PAIN [None]
  - NEPHROLITHIASIS [None]
  - OEDEMA PERIPHERAL [None]
  - PAIN IN EXTREMITY [None]
  - PHARMACEUTICAL PRODUCT COMPLAINT [None]
  - PIGMENTATION DISORDER [None]
  - PRODUCTIVE COUGH [None]
  - TREMOR [None]
  - VISUAL DISTURBANCE [None]
  - WEIGHT DECREASED [None]
